FAERS Safety Report 5597599-9 (Version None)
Quarter: 2008Q1

REPORT INFORMATION
  Report Type: 
  Country: None (occurrence: None)
  Receive Date: 20080121
  Receipt Date: 20080117
  Transmission Date: 20080703
  Serious: Yes (Life-Threatening, Hospitalization)
  Sender: FDA-Public Use
  Company Number: B0503876A

PATIENT
  Age: 52 Year
  Sex: Male

DRUGS (4)
  1. ULTIVA [Suspect]
     Route: 042
     Dates: start: 20071025, end: 20071025
  2. AUGMENTIN '125' [Suspect]
     Route: 042
     Dates: start: 20071025, end: 20071025
  3. DIPRIVAN [Suspect]
     Route: 042
     Dates: start: 20071025, end: 20071025
  4. XYLOCAINE [Concomitant]
     Route: 065
     Dates: start: 20071025, end: 20071025

REACTIONS (4)
  - ANAPHYLACTIC SHOCK [None]
  - BRONCHOSPASM [None]
  - CIRCULATORY COLLAPSE [None]
  - GENERALISED ERYTHEMA [None]
